FAERS Safety Report 4608102-1 (Version None)
Quarter: 2005Q2

REPORT INFORMATION
  Report Type: 
  Country: None (occurrence: None)
  Receive Date: 20050303
  Receipt Date: 20041026
  Transmission Date: 20051028
  Serious: No
  Sender: FDA-Public Use
  Company Number: 209962

PATIENT
  Age: 60 Year
  Sex: Female

DRUGS (1)
  1. XOLAIR [Suspect]
     Dosage: SUBCUTANEOUS
     Route: 058
     Dates: start: 20040601, end: 20040706

REACTIONS (1)
  - RASH [None]
